FAERS Safety Report 17346181 (Version 1)
Quarter: 2020Q1

REPORT INFORMATION
  Report Type: Report from Study
  Country: US (occurrence: US)
  Receive Date: 20200129
  Receipt Date: 20200129
  Transmission Date: 20200409
  Serious: Yes (Hospitalization)
  Sender: FDA-Public Use
  Company Number: US-EXELIXIS-CABO-19024297

PATIENT
  Sex: Male
  Weight: 93.88 kg

DRUGS (17)
  1. CRESTOR [Concomitant]
     Active Substance: ROSUVASTATIN CALCIUM
  2. MELATONIN [Concomitant]
     Active Substance: MELATONIN
  3. FLONASE [Concomitant]
     Active Substance: FLUTICASONE PROPIONATE
  4. PLAVIX [Concomitant]
     Active Substance: CLOPIDOGREL BISULFATE
  5. LOPRESSOR [Concomitant]
     Active Substance: METOPROLOL TARTRATE
  6. PRILOSEC [Concomitant]
     Active Substance: OMEPRAZOLE MAGNESIUM
  7. CABOMETYX [Suspect]
     Active Substance: CABOZANTINIB S-MALATE
     Indication: RENAL CANCER
     Dosage: 20 MG, QD
     Route: 048
     Dates: start: 20180401
  8. ACETAMINOPHEN. [Concomitant]
     Active Substance: ACETAMINOPHEN
  9. NITROGLYCERINE [Concomitant]
     Active Substance: NITROGLYCERIN
  10. LOSARTAN POTASSIUM. [Concomitant]
     Active Substance: LOSARTAN POTASSIUM
  11. PROSCAR [Concomitant]
     Active Substance: FINASTERIDE
  12. NORVASC [Concomitant]
     Active Substance: AMLODIPINE BESYLATE
  13. MULTIVITAMINS [Concomitant]
     Active Substance: VITAMINS
  14. MAGNESIUM [Concomitant]
     Active Substance: MAGNESIUM
  15. ECOTRIN [Concomitant]
     Active Substance: ASPIRIN
  16. HYDROXYZINE HCL [Concomitant]
     Active Substance: HYDROXYZINE HYDROCHLORIDE
  17. FLOMAX [Concomitant]
     Active Substance: TAMSULOSIN HYDROCHLORIDE

REACTIONS (1)
  - Pancreatitis [Unknown]
